FAERS Safety Report 8281256-4 (Version None)
Quarter: 2012Q2

REPORT INFORMATION
  Report Type: 
  Country: None (occurrence: None)
  Receive Date: 20120413
  Receipt Date: 20120330
  Transmission Date: 20120825
  Serious: Yes (Life-Threatening, Hospitalization, Disabling, Other)
  Sender: FDA-Public Use
  Company Number: JP-AMGEN-JPNSP2012018067

PATIENT
  Age: 27 Year
  Sex: Female
  Weight: 50 kg

DRUGS (10)
  1. RHEUMATREX [Concomitant]
     Dosage: 10 MG, WEEKLY
     Route: 048
  2. AIROMATE [Concomitant]
     Dosage: 40 MG/DAY
     Route: 048
  3. RHEUMATREX [Concomitant]
     Dosage: 8 MG, WEEKLY
     Route: 048
  4. FOLIAMIN [Concomitant]
     Indication: RHEUMATOID ARTHRITIS
     Dosage: 5 MG, WEEKLY
     Route: 048
  5. REBAMIPIDE [Concomitant]
     Dosage: 200 MG/DAY
     Route: 048
  6. SHAKUYAKUKANZOTO [Concomitant]
     Dosage: 2.5 G, QD
     Route: 048
  7. ENBREL [Suspect]
     Indication: RHEUMATOID ARTHRITIS
     Dosage: 25 MG, 2X/WEEK
     Route: 058
     Dates: start: 20100101, end: 20111201
  8. RHEUMATREX [Concomitant]
     Indication: RHEUMATOID ARTHRITIS
     Dosage: 6 MG, WEEKLY
     Route: 048
     Dates: start: 20060801
  9. METHYCOBAL [Concomitant]
     Dosage: 1500 MG/DAY
     Route: 048
  10. DIAZEPAM [Concomitant]
     Dosage: 2 MG, QD
     Route: 048

REACTIONS (1)
  - DEMYELINATION [None]
